FAERS Safety Report 21492060 (Version 1)
Quarter: 2022Q4

REPORT INFORMATION
  Report Type: Spontaneous
  Country: CA (occurrence: CA)
  Receive Date: 20221021
  Receipt Date: 20221021
  Transmission Date: 20230113
  Serious: Yes (Hospitalization)
  Sender: FDA-Public Use
  Company Number: CA-JNJFOC-20221032917

PATIENT
  Age: 40 Year
  Sex: Male

DRUGS (1)
  1. IBUPROFEN [Suspect]
     Active Substance: IBUPROFEN
     Indication: Product used for unknown indication
     Route: 065

REACTIONS (6)
  - Anastomotic ulcer haemorrhage [Unknown]
  - Haemodynamic instability [Unknown]
  - Haemoglobin abnormal [Unknown]
  - Haematemesis [Unknown]
  - Melaena [Unknown]
  - Anaemia [Unknown]
